FAERS Safety Report 4692780-5 (Version None)
Quarter: 2005Q2

REPORT INFORMATION
  Report Type: 
  Country: None (occurrence: None)
  Receive Date: 20050617
  Receipt Date: 20050311
  Transmission Date: 20051028
  Serious: Yes (Hospitalization, Disabling)
  Sender: FDA-Public Use
  Company Number: US-MERCK-0503USA02621

PATIENT
  Age: 58 Year
  Sex: Female
  Weight: 95 kg

DRUGS (7)
  1. VIOXX [Suspect]
     Indication: PSORIATIC ARTHROPATHY
     Route: 048
     Dates: start: 19990101, end: 20010101
  2. VIOXX [Suspect]
     Route: 048
     Dates: start: 20010106, end: 20040816
  3. PEPCID [Concomitant]
     Route: 048
  4. DARVOCET-N 100 [Concomitant]
     Route: 065
  5. PREDNISONE [Concomitant]
     Route: 065
     Dates: start: 20000101
  6. XANAX [Concomitant]
     Route: 065
     Dates: start: 20001201, end: 20001201
  7. ACETAMINOPHEN [Concomitant]
     Route: 065

REACTIONS (13)
  - ACUTE MYOCARDIAL INFARCTION [None]
  - ATRIAL FIBRILLATION [None]
  - BLOOD CHOLESTEROL INCREASED [None]
  - DIARRHOEA [None]
  - DIVERTICULITIS [None]
  - GASTRITIS [None]
  - HYPERTENSION [None]
  - LOBAR PNEUMONIA [None]
  - NAUSEA [None]
  - OEDEMA [None]
  - PERICARDITIS [None]
  - PLEURISY [None]
  - VOMITING [None]
